FAERS Safety Report 4499835-9 (Version None)
Quarter: 2004Q4

REPORT INFORMATION
  Report Type: 
  Country: None (occurrence: None)
  Receive Date: 20041112
  Receipt Date: 20020820
  Transmission Date: 20050328
  Serious: Yes (Life-Threatening, Other)
  Sender: FDA-Public Use
  Company Number: US-AMGEN-US017795

PATIENT
  Sex: Female
  Weight: 37.2 kg

DRUGS (6)
  1. EPOGEN [Suspect]
     Indication: DIALYSIS
     Route: 058
     Dates: start: 20020117, end: 20020801
  2. NEPHRO-VITE [Concomitant]
     Dates: start: 20020323
  3. NIFEREX [Concomitant]
     Dates: start: 20011030
  4. COLACE [Concomitant]
     Dates: start: 20020101
  5. RENAGEL [Concomitant]
     Dates: start: 20020323
  6. ROCALTROL [Concomitant]
     Dates: start: 19910101

REACTIONS (6)
  - ANTI-ERYTHROPOIETIN ANTIBODY POSITIVE [None]
  - APLASTIC ANAEMIA [None]
  - MARROW HYPERPLASIA [None]
  - PANCYTOPENIA [None]
  - PERITONEAL DIALYSIS [None]
  - THERAPEUTIC RESPONSE DECREASED [None]
